FAERS Safety Report 10350975 (Version 1)
Quarter: 2014Q3

REPORT INFORMATION
  Report Type: Spontaneous
  Country: US (occurrence: US)
  Receive Date: 20140730
  Receipt Date: 20140730
  Transmission Date: 20150326
  Serious: Yes (Other)
  Sender: FDA-Public Use
  Company Number: US-AMGEN-USASP2014055983

PATIENT
  Age: 45 Year
  Sex: Female

DRUGS (1)
  1. PROLIA [Suspect]
     Active Substance: DENOSUMAB
     Indication: OSTEOPOROSIS
     Dosage: UNK
     Route: 065
     Dates: start: 20140722

REACTIONS (6)
  - Tunnel vision [Unknown]
  - Dizziness [Unknown]
  - Nausea [Unknown]
  - Lethargy [Unknown]
  - Malaise [Unknown]
  - Feeling hot [Unknown]

NARRATIVE: CASE EVENT DATE: 20140722
